FAERS Safety Report 7727453-5 (Version None)
Quarter: 2011Q3

REPORT INFORMATION
  Report Type: 
  Country: None (occurrence: None)
  Receive Date: 20110902
  Receipt Date: 20110822
  Transmission Date: 20111222
  Serious: Yes (Hospitalization)
  Sender: FDA-Public Use
  Company Number: KR-PFIZER INC-2011180246

PATIENT
  Sex: Male
  Weight: 60.6 kg

DRUGS (6)
  1. MYPOL [Concomitant]
     Indication: CHEST PAIN
     Dosage: UNK
     Dates: start: 20110503
  2. OXCARBAZEPINE [Suspect]
     Indication: CONVULSION PROPHYLAXIS
     Dosage: 450 MG, 2X/DAY
     Route: 048
     Dates: start: 20110208, end: 20110807
  3. PF-02341066 [Suspect]
     Indication: NON-SMALL CELL LUNG CANCER
     Dosage: 250 MG, 2X/DAY
     Route: 048
     Dates: start: 20110518, end: 20110802
  4. TAMSULOSIN [Concomitant]
     Indication: DYSURIA
     Dosage: UNK
     Dates: start: 20110608
  5. OXYCODONE HYDROCHLORIDE [Concomitant]
     Indication: CHEST PAIN
     Dosage: UNK
     Dates: start: 20110503, end: 20110807
  6. MAGNESIUM OXIDE [Concomitant]
     Indication: CONSTIPATION
     Dosage: UNK
     Dates: start: 20110511

REACTIONS (1)
  - HYPONATRAEMIA [None]
